FAERS Safety Report 5300304-4 (Version None)
Quarter: 2007Q2

REPORT INFORMATION
  Report Type: 
  Country: None (occurrence: None)
  Receive Date: 20070418
  Receipt Date: 20070404
  Transmission Date: 20071010
  Serious: Yes (Other)
  Sender: FDA-Public Use
  Company Number: PHHO2007MX06112

PATIENT
  Age: 16 Year
  Sex: Female

DRUGS (2)
  1. TRILEPTAL [Suspect]
     Indication: EPILEPSY
     Dosage: 600 MG, BID
     Dates: start: 20061101
  2. TRILEPTAL [Suspect]
     Dosage: 30 OR 40 TABLETS
     Dates: start: 20070330, end: 20070330

REACTIONS (4)
  - HYPERGLYCAEMIA [None]
  - INTENTIONAL OVERDOSE [None]
  - TONIC CLONIC MOVEMENTS [None]
  - VOMITING [None]
